FAERS Safety Report 13913598 (Version 1)
Quarter: 2017Q3

REPORT INFORMATION
  Report Type: Spontaneous
  Country: US (occurrence: US)
  Receive Date: 20170828
  Receipt Date: 20170828
  Transmission Date: 20171127
  Serious: No
  Sender: FDA-Public Use
  Company Number: US-ROCHE-1138048

PATIENT
  Sex: Male

DRUGS (2)
  1. DDAVP [Concomitant]
     Active Substance: DESMOPRESSIN ACETATE
  2. NUTROPIN [Suspect]
     Active Substance: SOMATROPIN
     Indication: DWARFISM

REACTIONS (4)
  - Influenza [Unknown]
  - Malaise [Unknown]
  - Growth retardation [Unknown]
  - Bronchitis [Unknown]
